FAERS Safety Report 9776544 (Version 1)
Quarter: 2013Q4

REPORT INFORMATION
  Report Type: Spontaneous
  Country: IT (occurrence: IT)
  Receive Date: 20131220
  Receipt Date: 20131220
  Transmission Date: 20140711
  Serious: Yes (Other)
  Sender: FDA-Public Use
  Company Number: IT-ABBVIE-13P-083-1181587-00

PATIENT
  Age: 19 Year
  Sex: Male

DRUGS (1)
  1. DEPAKIN [Suspect]
     Indication: PRODUCT USED FOR UNKNOWN INDICATION
     Route: 048
     Dates: start: 20130816, end: 20130816

REACTIONS (2)
  - Psychomotor hyperactivity [Unknown]
  - Intentional self-injury [Unknown]
